FAERS Safety Report 23524959 (Version 1)
Quarter: 2024Q1

REPORT INFORMATION
  Report Type: Spontaneous
  Country: US (occurrence: US)
  Receive Date: 20240215
  Receipt Date: 20240215
  Transmission Date: 20240410
  Serious: Yes (Hospitalization, Other)
  Sender: FDA-Public Use
  Company Number: US-TEVA-VS-3154435

PATIENT

DRUGS (1)
  1. BUPRENORPHINE [Suspect]
     Active Substance: BUPRENORPHINE
     Indication: Pain
     Route: 065
     Dates: start: 2018

REACTIONS (35)
  - Post procedural complication [Unknown]
  - Gastrointestinal inflammation [Unknown]
  - Inflammatory bowel disease [Unknown]
  - Incision site haemorrhage [Unknown]
  - Gastrooesophageal reflux disease [Unknown]
  - Catatonia [Recovered/Resolved]
  - Sedation complication [Recovered/Resolved]
  - Intestinal obstruction [Unknown]
  - Toothache [Unknown]
  - Tooth infection [Unknown]
  - Neuralgia [Unknown]
  - Tooth loss [Unknown]
  - Weight decreased [Unknown]
  - Somnolence [Recovered/Resolved]
  - Drooling [Unknown]
  - Disturbance in attention [Recovered/Resolved]
  - Vomiting [Unknown]
  - Cognitive disorder [Recovered/Resolved]
  - Gastrointestinal pain [Unknown]
  - Gastritis [Unknown]
  - Withdrawal syndrome [Recovered/Resolved]
  - Dental caries [Unknown]
  - Near death experience [Recovered/Resolved]
  - Loss of bladder sensation [Recovered/Resolved]
  - Gait inability [Unknown]
  - Feeding disorder [Unknown]
  - Anxiety [Unknown]
  - Internal haemorrhage [Unknown]
  - Pain [Unknown]
  - Procedural pain [Unknown]
  - Somnolence [Recovered/Resolved]
  - Insurance issue [Unknown]
  - Emotional distress [Unknown]
  - Quality of life decreased [Unknown]
  - Personal relationship issue [Unknown]
